FAERS Safety Report 10162220 (Version 1)
Quarter: 2014Q2

REPORT INFORMATION
  Report Type: Spontaneous
  Country: US (occurrence: None)
  Receive Date: 20140508
  Receipt Date: 20140508
  Transmission Date: 20141212
  Serious: Yes (Hospitalization)
  Sender: FDA-Public Use
  Company Number: None

PATIENT
  Age: 77 Year
  Sex: Male
  Weight: 74.5 kg

DRUGS (3)
  1. IPILIMUMAB [Suspect]
  2. ASPIRIN [Suspect]
  3. CLOPIDOGREL [Suspect]

REACTIONS (2)
  - Haematochezia [None]
  - Diarrhoea [None]
